FAERS Safety Report 18758346 (Version 1)
Quarter: 2021Q1

REPORT INFORMATION
  Report Type: Spontaneous
  Country: US (occurrence: US)
  Receive Date: 20210119
  Receipt Date: 20210119
  Transmission Date: 20210419
  Serious: No
  Sender: FDA-Public Use
  Company Number: US-MYLANLABS-2021M1001567

PATIENT
  Age: 58 Year
  Sex: Female
  Weight: 100 kg

DRUGS (2)
  1. LIDOCAINE PATCH [Suspect]
     Active Substance: LIDOCAINE
     Indication: ARTHRALGIA
     Dosage: ON 12 HOURS
     Route: 003
     Dates: start: 20201118, end: 20201118
  2. LIDOCAINE PATCH [Suspect]
     Active Substance: LIDOCAINE
     Indication: TENDONITIS

REACTIONS (2)
  - Off label use [Unknown]
  - Product adhesion issue [Not Recovered/Not Resolved]

NARRATIVE: CASE EVENT DATE: 20201118
